FAERS Safety Report 8197584-7 (Version None)
Quarter: 2012Q1

REPORT INFORMATION
  Report Type: 
  Country: None (occurrence: None)
  Receive Date: 20120309
  Receipt Date: 20120227
  Transmission Date: 20120608
  Serious: No
  Sender: FDA-Public Use
  Company Number: US-B.I. PHARMACEUTICALS,INC./RIDGEFIELD-2012-BP-03683BP

PATIENT
  Sex: Male

DRUGS (2)
  1. LIPITOR [Concomitant]
     Indication: BLOOD CHOLESTEROL INCREASED
     Dosage: 20 MG
     Route: 048
     Dates: start: 20120220
  2. PRADAXA [Suspect]
     Indication: CAROTID ARTERY DISSECTION
     Dosage: 300 MG
     Route: 048
     Dates: start: 20120115

REACTIONS (1)
  - TINNITUS [None]
